FAERS Safety Report 11416483 (Version 1)
Quarter: 2015Q3

REPORT INFORMATION
  Report Type: Spontaneous
  Country: US (occurrence: US)
  Receive Date: 20150825
  Receipt Date: 20150825
  Transmission Date: 20151125
  Serious: Yes (Hospitalization, Other)
  Sender: FDA-Public Use
  Company Number: US-PFIZER INC-2015279639

PATIENT
  Age: 82 Year
  Sex: Female
  Weight: 61 kg

DRUGS (3)
  1. DETROL LA [Concomitant]
     Active Substance: TOLTERODINE TARTRATE
     Dosage: 4 MG, 1X/DAY
  2. LYRICA [Suspect]
     Active Substance: PREGABALIN
     Indication: NEUROPATHY PERIPHERAL
     Dosage: 75 MG, 2X/DAY
     Route: 048
  3. LYRICA [Suspect]
     Active Substance: PREGABALIN
     Dosage: 125 MG, 2X/DAY
     Route: 048

REACTIONS (16)
  - Feeling hot [Unknown]
  - Paraesthesia [Unknown]
  - Chest pain [Unknown]
  - Cerebrovascular accident [Unknown]
  - Condition aggravated [Not Recovered/Not Resolved]
  - Neuropathy peripheral [Recovering/Resolving]
  - Chest discomfort [Unknown]
  - Intentional product use issue [Unknown]
  - Myocardial infarction [Unknown]
  - Rash [Not Recovered/Not Resolved]
  - Urosepsis [Unknown]
  - Hyperpyrexia [Unknown]
  - Urinary incontinence [Not Recovered/Not Resolved]
  - Anaemia [Not Recovered/Not Resolved]
  - Condition aggravated [Recovering/Resolving]
  - Chills [Unknown]

NARRATIVE: CASE EVENT DATE: 2011
